FAERS Safety Report 13920228 (Version 1)
Quarter: 2017Q3

REPORT INFORMATION
  Report Type: Spontaneous
  Country: US (occurrence: US)
  Receive Date: 20170830
  Receipt Date: 20170830
  Transmission Date: 20171127
  Serious: No
  Sender: FDA-Public Use
  Company Number: US-PFIZER INC-2017373686

PATIENT
  Age: 74 Year
  Sex: Female
  Weight: 115.26 kg

DRUGS (1)
  1. IBRANCE [Suspect]
     Active Substance: PALBOCICLIB
     Indication: BREAST CANCER
     Dosage: 75 MG, CYCLIC (75 MG ONCE A DAY FOR 21 DAYS THEN 7 DAYS OFF)
     Dates: start: 2015, end: 201708

REACTIONS (1)
  - Neoplasm progression [Unknown]
